FAERS Safety Report 5321206-3 (Version None)
Quarter: 2007Q2

REPORT INFORMATION
  Report Type: 
  Country: None (occurrence: None)
  Receive Date: 20070214
  Receipt Date: 20060523
  Transmission Date: 20071010
  Serious: Yes (Other)
  Sender: FDA-Public Use
  Company Number: 145986USA

PATIENT
  Age: 63 Year

DRUGS (1)
  1. PROPOFOL [Suspect]
     Indication: SEDATION
     Dosage: 10 MICROGRAMS/ML
     Dates: start: 20060101, end: 20060101

REACTIONS (1)
  - AGITATION [None]
